FAERS Safety Report 26140947 (Version 1)
Quarter: 2025Q4

REPORT INFORMATION
  Report Type: Report from Study
  Country: US (occurrence: US)
  Receive Date: 20251210
  Receipt Date: 20251210
  Transmission Date: 20260117
  Serious: Yes (Hospitalization)
  Sender: TAKEDA
  Company Number: US-TAKEDA-2024TUS034197

PATIENT
  Sex: Female
  Weight: 11 kg

DRUGS (9)
  1. TEDUGLUTIDE [Suspect]
     Active Substance: TEDUGLUTIDE
     Indication: Short-bowel syndrome
     Dosage: 0.5 MILLIGRAM, QD
  2. TEDUGLUTIDE [Suspect]
     Active Substance: TEDUGLUTIDE
     Indication: Malabsorption
     Dosage: 0.5 MILLIGRAM, QD
  3. TEDUGLUTIDE [Suspect]
     Active Substance: TEDUGLUTIDE
     Indication: Crohn^s disease
     Dosage: 0.7 MILLIGRAM, QD
  4. TEDUGLUTIDE [Suspect]
     Active Substance: TEDUGLUTIDE
     Dosage: 0.7 MILLIGRAM, QD
  5. LOPERAMIDE [Concomitant]
     Active Substance: LOPERAMIDE
     Dosage: UNK
  6. OMEPRAZOLE [Concomitant]
     Active Substance: OMEPRAZOLE
     Dosage: UNK
  7. DIAZEPAM [Concomitant]
     Active Substance: DIAZEPAM
     Dosage: UNK
  8. PULMICORT FLEXHALER [Concomitant]
     Active Substance: BUDESONIDE
     Dosage: UNK
  9. TPN [Concomitant]
     Active Substance: AMINO ACIDS\DEXTROSE\ELECTROLYTES NOS\SOYBEAN OIL
     Dosage: UNK

REACTIONS (2)
  - Norovirus infection [Unknown]
  - Bowel movement irregularity [Not Recovered/Not Resolved]
